FAERS Safety Report 20316506 (Version 1)
Quarter: 2022Q1

REPORT INFORMATION
  Report Type: Spontaneous
  Country: US (occurrence: US)
  Receive Date: 20220110
  Receipt Date: 20220110
  Transmission Date: 20220423
  Serious: Yes (Other)
  Sender: FDA-Public Use
  Company Number: US-PACIRA-2021000279

PATIENT

DRUGS (4)
  1. EXPAREL [Suspect]
     Active Substance: BUPIVACAINE
     Dosage: MIXED WITH 100 MG OF BUPIVACAINE
     Route: 050
  2. BUPIVACAINE [Suspect]
     Active Substance: BUPIVACAINE
     Dosage: MIXED WITH 266 MG OF EXPAREL
     Route: 050
  3. ACETAMINOPHEN [Concomitant]
     Active Substance: ACETAMINOPHEN
     Dosage: BEFORE SURGERY
     Route: 048
  4. ACETAMINOPHEN [Concomitant]
     Active Substance: ACETAMINOPHEN
     Dosage: EVERY 6 H FOR 72 H AFTER SURGERY
     Route: 048

REACTIONS (4)
  - Ileus [Unknown]
  - Hypoxia [Unknown]
  - Post procedural hypotension [Unknown]
  - Procedural pain [Unknown]
